FAERS Safety Report 4698572-5 (Version None)
Quarter: 2005Q2

REPORT INFORMATION
  Report Type: 
  Country: None (occurrence: None)
  Receive Date: 20050622
  Receipt Date: 20050613
  Transmission Date: 20051028
  Serious: Yes (Life-Threatening, Hospitalization, Other)
  Sender: FDA-Public Use
  Company Number: 2005-06-0938

PATIENT
  Age: 44 Year
  Sex: Male

DRUGS (13)
  1. PEG-INTRON [Suspect]
     Indication: HEPATITIS C
     Dosage: 150 MCG QWK; 75 MCG, QWK; SUBCUTANEOUS
     Route: 058
     Dates: start: 20050304, end: 20050614
  2. PEG-INTRON [Suspect]
     Indication: HEPATITIS C
     Dosage: 150 MCG QWK; 75 MCG, QWK; SUBCUTANEOUS
     Route: 058
     Dates: start: 20050304
  3. PEG-INTRON [Suspect]
     Indication: HEPATITIS C
     Dosage: 150 MCG QWK; 75 MCG, QWK; SUBCUTANEOUS
     Route: 058
     Dates: start: 20050614
  4. REBETOL [Suspect]
     Indication: HEPATITIS C
     Dosage: 1200 MG QD; 800 MG, QD; ORAL
     Route: 048
     Dates: start: 20050304, end: 20050614
  5. REBETOL [Suspect]
     Indication: HEPATITIS C
     Dosage: 1200 MG QD; 800 MG, QD; ORAL
     Route: 048
     Dates: start: 20050304
  6. REBETOL [Suspect]
     Indication: HEPATITIS C
     Dosage: 1200 MG QD; 800 MG, QD; ORAL
     Route: 048
     Dates: start: 20050614
  7. EFFEXOR [Suspect]
     Indication: PROPHYLAXIS
     Dosage: ORAL
     Route: 048
     Dates: end: 20050331
  8. XANAX [Suspect]
     Indication: ANXIETY
     Dosage: 0.25 MG PRN; 1 MG, D; 0.5 MG TID, 1 MG HS PRN; ORAL
     Route: 048
     Dates: start: 20050331, end: 20050407
  9. XANAX [Suspect]
     Indication: ANXIETY
     Dosage: 0.25 MG PRN; 1 MG, D; 0.5 MG TID, 1 MG HS PRN; ORAL
     Route: 048
     Dates: start: 20050407, end: 20050412
  10. XANAX [Suspect]
     Indication: ANXIETY
     Dosage: 0.25 MG PRN; 1 MG, D; 0.5 MG TID, 1 MG HS PRN; ORAL
     Route: 048
     Dates: start: 20050331, end: 20050614
  11. XANAX [Suspect]
     Indication: ANXIETY
     Dosage: 0.25 MG PRN; 1 MG, D; 0.5 MG TID, 1 MG HS PRN; ORAL
     Route: 048
     Dates: start: 20050412, end: 20050614
  12. XANAX [Suspect]
     Indication: ANXIETY
     Dosage: 0.25 MG PRN; 1 MG, D; 0.5 MG TID, 1 MG HS PRN; ORAL
     Route: 048
     Dates: start: 20050412, end: 20050614
  13. . [Concomitant]

REACTIONS (20)
  - AGITATION [None]
  - ANXIETY [None]
  - BRAIN OEDEMA [None]
  - CLAVICLE FRACTURE [None]
  - CONCUSSION [None]
  - DISSOCIATIVE IDENTITY DISORDER [None]
  - DIZZINESS [None]
  - DRUG HYPERSENSITIVITY [None]
  - DYSARTHRIA [None]
  - DYSPNOEA [None]
  - HEADACHE [None]
  - HYPERHIDROSIS [None]
  - LOSS OF CONSCIOUSNESS [None]
  - PANIC ATTACK [None]
  - PHARYNGEAL OEDEMA [None]
  - RIB FRACTURE [None]
  - ROAD TRAFFIC ACCIDENT [None]
  - WEIGHT DECREASED [None]
  - WHEEZING [None]
  - WHITE BLOOD CELL COUNT DECREASED [None]
